FAERS Safety Report 5087232-7 (Version None)
Quarter: 2006Q3

REPORT INFORMATION
  Report Type: 
  Country: None (occurrence: None)
  Receive Date: 20060821
  Receipt Date: 20060809
  Transmission Date: 20061208
  Serious: Yes (Hospitalization, Other)
  Sender: FDA-Public Use
  Company Number: GBWYE099731OCT05

PATIENT
  Age: 30 Year
  Sex: Female

DRUGS (3)
  1. EFEXOR XL (VENLAFAXINE HYDROCHLORIDE, CAPSULE, EXTENDED RELAEASE, 0) [Suspect]
     Indication: DEPRESSION
     Dosage: 150 + 75 MG, FREQUENCY UNKNOWN ORAL - SEE IMAGE
     Route: 048
     Dates: end: 20051107
  2. EFEXOR XL (VENLAFAXINE HYDROCHLORIDE, CAPSULE, EXTENDED RELAEASE, 0) [Suspect]
     Indication: DEPRESSION
     Dosage: 150 + 75 MG, FREQUENCY UNKNOWN ORAL - SEE IMAGE
     Route: 048
     Dates: start: 20051108, end: 20060501
  3. EFFEXOR [Suspect]
     Indication: DEPRESSION
     Dosage: ORAL
     Route: 048
     Dates: start: 20051108, end: 20060501

REACTIONS (5)
  - DISEASE RECURRENCE [None]
  - DRUG EXPOSURE DURING PREGNANCY [None]
  - POSTPARTUM HAEMORRHAGE [None]
  - PYELONEPHRITIS [None]
  - URINARY TRACT INFECTION [None]
